FAERS Safety Report 5955700-9 (Version None)
Quarter: 2008Q4

REPORT INFORMATION
  Report Type: 
  Country: None (occurrence: None)
  Receive Date: 20081112
  Receipt Date: 20081029
  Transmission Date: 20090506
  Serious: Yes (Other)
  Sender: FDA-Public Use
  Company Number: 2008-03896

PATIENT
  Age: 69 Year
  Sex: Male
  Weight: 61 kg

DRUGS (13)
  1. VELCADE [Suspect]
     Indication: MULTIPLE MYELOMA
     Dosage: 2 MG, INTRAVENOUS; 1.5 MG, INTRAVENOUS
     Route: 042
     Dates: start: 20070122, end: 20070201
  2. VELCADE [Suspect]
     Indication: MULTIPLE MYELOMA
     Dosage: 2 MG, INTRAVENOUS; 1.5 MG, INTRAVENOUS
     Route: 042
     Dates: start: 20070213, end: 20070216
  3. PREDNISOLONE [Concomitant]
  4. AMLODIPINE BESYLATE [Concomitant]
  5. WARFARIN POTASSIUM (WARFARIN POTASSIUM) [Concomitant]
  6. SOLITA-T3 INJECTION (SODIUM LACTATE, SODIUM CHLORIDE, POTASSIUM CHLORI [Concomitant]
  7. FIRSTCIN (CEFOZOPRAN HYDROCHLORIDE) [Concomitant]
  8. DASEN (SERRAPEPTASE) [Concomitant]
  9. OXYGEN (OXYGEN) [Concomitant]
  10. CIPROFLOXACIN HCL [Concomitant]
  11. OXYCONTIN [Concomitant]
  12. SUPROFEN (SUPROFEN) [Concomitant]
  13. VALTREX [Concomitant]

REACTIONS (8)
  - BRONCHITIS [None]
  - ENCEPHALITIS [None]
  - HERPES ZOSTER [None]
  - LYMPHOCYTE COUNT DECREASED [None]
  - NEUROPATHY PERIPHERAL [None]
  - NEUTROPHIL COUNT DECREASED [None]
  - PLATELET COUNT DECREASED [None]
  - PNEUMONIA [None]
